FAERS Safety Report 10143568 (Version 1)
Quarter: 2014Q2

REPORT INFORMATION
  Report Type: Report from Study
  Country: KR (occurrence: KR)
  Receive Date: 20140430
  Receipt Date: 20140430
  Transmission Date: 20141212
  Serious: Yes (Death, Hospitalization)
  Sender: FDA-Public Use
  Company Number: KR-SA-2014SA054985

PATIENT
  Age: 67 Year
  Sex: Male

DRUGS (6)
  1. OXALIPLATIN [Suspect]
     Indication: PROSTATE CANCER METASTATIC
     Dosage: 2 H INTRAVENOUS INFUSION ADMINISTERED ON DAY 1
     Route: 042
  2. OXALIPLATIN [Suspect]
     Indication: PROSTATE CANCER METASTATIC
     Dosage: 2 H INTRAVENOUS INFUSION ADMINISTERED ON DAY 1
     Route: 042
  3. PREDNISOLONE [Suspect]
     Indication: PROSTATE CANCER METASTATIC
     Route: 048
  4. PREDNISOLONE [Suspect]
     Indication: PROSTATE CANCER METASTATIC
     Route: 048
  5. GEMCITABINE [Suspect]
     Indication: PROSTATE CANCER METASTATIC
     Dosage: DRUG WAS ADMINISTERED AT A FIXED DOSE RATE: 10 MG/M2 PER MINUTE
     Route: 042
  6. GEMCITABINE [Suspect]
     Indication: PROSTATE CANCER METASTATIC
     Dosage: DRUG WAS ADMINISTERED AT A FIXED DOSE RATE: 10 MG/M2 PER MINUTE
     Route: 042

REACTIONS (1)
  - Upper gastrointestinal haemorrhage [Fatal]
